FAERS Safety Report 9296303 (Version 1)
Quarter: 2013Q2

REPORT INFORMATION
  Report Type: Report from Study
  Country: US (occurrence: US)
  Receive Date: 20130517
  Receipt Date: 20130517
  Transmission Date: 20140414
  Serious: Yes (Other)
  Sender: FDA-Public Use
  Company Number: US-TEVA-402571USA

PATIENT
  Age: 13 Year
  Sex: Male

DRUGS (2)
  1. CLARAVIS [Suspect]
     Dosage: 20 MG 1ST MONTH, 40 MG THEREAFTER
     Route: 048
     Dates: start: 20121016, end: 201303
  2. AMNESTEEM [Suspect]
     Dosage: 50 MILLIGRAM DAILY;

REACTIONS (3)
  - Suicidal ideation [Recovering/Resolving]
  - Mood altered [Recovering/Resolving]
  - Depression [Recovering/Resolving]
